FAERS Safety Report 6911733-7 (Version None)
Quarter: 2010Q3

REPORT INFORMATION
  Report Type: 
  Country: None (occurrence: None)
  Receive Date: 20100806
  Receipt Date: 20100728
  Transmission Date: 20110219
  Serious: Yes (Hospitalization)
  Sender: FDA-Public Use
  Company Number: FR-WYE-H14965810

PATIENT
  Age: 81 Year
  Sex: Female

DRUGS (10)
  1. PANTOPRAZOLE SODIUM [Suspect]
     Route: 048
  2. TENORETIC 100 [Suspect]
     Route: 048
  3. STRUCTUM [Concomitant]
  4. KARDEGIC [Concomitant]
  5. BETASERC [Concomitant]
  6. CALTRATE [Concomitant]
  7. CRESTOR [Concomitant]
  8. IBANDRONIC ACID [Concomitant]
  9. LOGIMAX [Suspect]
     Route: 048
  10. APROVEL [Concomitant]
     Route: 048

REACTIONS (2)
  - HYPOKALAEMIA [None]
  - HYPONATRAEMIA [None]
